FAERS Safety Report 6570947-9 (Version None)
Quarter: 2010Q1

REPORT INFORMATION
  Report Type: 
  Country: None (occurrence: None)
  Receive Date: 20100204
  Receipt Date: 20100127
  Transmission Date: 20100710
  Serious: Yes (Death)
  Sender: FDA-Public Use
  Company Number: JP-BAXTER-2009BH016531

PATIENT
  Age: 81 Year
  Sex: Female

DRUGS (2)
  1. ENDOXAN BAXTER [Suspect]
     Indication: MULTIPLE MYELOMA
     Route: 048
     Dates: start: 19880101
  2. MELPHALAN HYDROCHLORIDE [Suspect]
     Indication: MULTIPLE MYELOMA
     Route: 048
     Dates: start: 19880101, end: 20080924

REACTIONS (1)
  - LYMPHOMA [None]
